FAERS Safety Report 6270704-7 (Version None)
Quarter: 2009Q3

REPORT INFORMATION
  Report Type: 
  Country: None (occurrence: None)
  Receive Date: 20090716
  Receipt Date: 20090708
  Transmission Date: 20100115
  Serious: Yes (Other)
  Sender: FDA-Public Use
  Company Number: US-AMGEN-KDL345911

PATIENT
  Sex: Male

DRUGS (3)
  1. ARANESP [Suspect]
     Indication: RENAL FAILURE CHRONIC
     Route: 058
     Dates: start: 20090504, end: 20090616
  2. ASPIRIN [Concomitant]
  3. COUMADIN [Concomitant]

REACTIONS (5)
  - BLOOD PRESSURE INCREASED [None]
  - BURNING SENSATION [None]
  - COUGH [None]
  - DYSPNOEA [None]
  - LYMPHOMA [None]
